FAERS Safety Report 25623617 (Version 1)
Quarter: 2025Q3

REPORT INFORMATION
  Report Type: Spontaneous
  Country: US (occurrence: US)
  Receive Date: 20250730
  Receipt Date: 20250730
  Transmission Date: 20251021
  Serious: No
  Sender: MYLAN
  Company Number: US-MYLANLABS-2025M1061914

PATIENT
  Age: 62 Year
  Sex: Female
  Weight: 66.22 kg

DRUGS (5)
  1. BREYNA [Suspect]
     Active Substance: BUDESONIDE\FORMOTEROL FUMARATE
     Dosage: 160 PER 4.5 MICROGRAM, BID (TWICE DAILY)
     Dates: start: 202506
  2. LOSARTAN [Concomitant]
     Active Substance: LOSARTAN
  3. OMEPRAZOLE [Concomitant]
     Active Substance: OMEPRAZOLE
  4. FAMOTIDINE [Concomitant]
     Active Substance: FAMOTIDINE
  5. RESTASIS [Concomitant]
     Active Substance: CYCLOSPORINE

REACTIONS (3)
  - Device delivery system issue [Unknown]
  - Drug dose omission by device [Unknown]
  - Wrong technique in device usage process [Unknown]
